FAERS Safety Report 9465791 (Version 1)
Quarter: 2013Q3

REPORT INFORMATION
  Report Type: Spontaneous
  Country: US (occurrence: US)
  Receive Date: 20130820
  Receipt Date: 20130820
  Transmission Date: 20140515
  Serious: No
  Sender: FDA-Public Use
  Company Number: US-PFIZER INC-2013238700

PATIENT
  Sex: Male

DRUGS (4)
  1. CHANTIX [Suspect]
     Indication: SMOKING CESSATION THERAPY
     Dosage: UNK
  2. NICOTINE GUM [Suspect]
     Indication: SMOKING CESSATION THERAPY
     Dosage: UNK
  3. WELLBUTRIN [Suspect]
     Indication: SMOKING CESSATION THERAPY
     Dosage: UNK
  4. NICOTINE PATCH [Suspect]
     Indication: SMOKING CESSATION THERAPY
     Dosage: UNK

REACTIONS (1)
  - Drug ineffective [Unknown]
